FAERS Safety Report 5989902-2 (Version None)
Quarter: 2008Q4

REPORT INFORMATION
  Report Type: 
  Country: None (occurrence: None)
  Receive Date: 20081209
  Receipt Date: 20081124
  Transmission Date: 20090506
  Serious: Yes (Hospitalization)
  Sender: FDA-Public Use
  Company Number: 2008003037

PATIENT
  Age: 77 Year
  Sex: Male

DRUGS (7)
  1. TARCEVA [Suspect]
     Indication: BRONCHIAL CARCINOMA
     Dosage: 150 MG, OD, ORAL
     Route: 048
  2. GLIMEPIRIDE [Concomitant]
  3. IRBESARTAN [Concomitant]
  4. SIMVASTATIN [Concomitant]
  5. ALLOPURINOL [Concomitant]
  6. BISOPROLOL FUMARATE [Concomitant]
  7. MOXIMIDIN [Concomitant]

REACTIONS (1)
  - HYPOGLYCAEMIA [None]
